FAERS Safety Report 5176922-3 (Version None)
Quarter: 2006Q4

REPORT INFORMATION
  Report Type: 
  Country: None (occurrence: None)
  Receive Date: 20061207
  Receipt Date: 20061122
  Transmission Date: 20070319
  Serious: Yes (Other)
  Sender: FDA-Public Use
  Company Number: 2006S1010941

PATIENT
  Age: 62 Year
  Sex: Female
  Weight: 79.5 kg

DRUGS (6)
  1. PROCRIT [Suspect]
     Indication: ANAEMIA
     Dosage: QW SC
     Route: 058
  2. PHENYTEX [Suspect]
     Indication: CONVULSION
     Dosage: 300 MG QD PO
     Route: 048
     Dates: start: 20060301, end: 20060301
  3. WARFARIN SODIUM [Concomitant]
  4. LEVETIRACETAM [Concomitant]
  5. MESALAZINE [Concomitant]
  6. PREDNISONE TAB [Concomitant]

REACTIONS (1)
  - APLASIA PURE RED CELL [None]
